FAERS Safety Report 5133302-4 (Version None)
Quarter: 2006Q4

REPORT INFORMATION
  Report Type: 
  Country: None (occurrence: None)
  Receive Date: 20060831
  Receipt Date: 20060606
  Transmission Date: 20070319
  Serious: No
  Sender: FDA-Public Use
  Company Number: 2006-BP-03427BP

PATIENT
  Age: 78 Year
  Sex: Male

DRUGS (2)
  1. SPIRIVA [Suspect]
     Dosage: (18 MCG),IH
  2. SPIRIVA [Suspect]

REACTIONS (2)
  - AGEUSIA [None]
  - FEELING ABNORMAL [None]
